FAERS Safety Report 9802000 (Version 2)
Quarter: 2014Q1

REPORT INFORMATION
  Report Type: Report from Study
  Country: IT (occurrence: IT)
  Receive Date: 20140107
  Receipt Date: 20140107
  Transmission Date: 20141002
  Serious: Yes (Death, Hospitalization)
  Sender: FDA-Public Use
  Company Number: IT-BRISTOL-MYERS SQUIBB COMPANY-14949853

PATIENT
  Age: 41 Year
  Sex: Male

DRUGS (1)
  1. IPILIMUMAB [Suspect]
     Indication: MALIGNANT MELANOMA
     Dosage: 1 DF = 250 UNIT NOS
     Route: 042
     Dates: start: 20091026, end: 20091210

REACTIONS (3)
  - Death [Fatal]
  - Colitis ulcerative [Recovered/Resolved]
  - Rectal haemorrhage [Recovered/Resolved]
